FAERS Safety Report 7993275-3 (Version None)
Quarter: 2011Q4

REPORT INFORMATION
  Report Type: 
  Country: None (occurrence: None)
  Receive Date: 20111219
  Receipt Date: 20111014
  Transmission Date: 20120403
  Serious: Yes (Other)
  Sender: FDA-Public Use
  Company Number: US-ASTRAZENECA-2011SE60941

PATIENT
  Sex: Male

DRUGS (2)
  1. CRESTOR [Suspect]
     Route: 048
     Dates: end: 20110901
  2. CRESTOR [Suspect]
     Dosage: LOWERED DOSE
     Route: 048

REACTIONS (2)
  - RHABDOMYOLYSIS [None]
  - HYPOAESTHESIA [None]
